FAERS Safety Report 24002514 (Version 1)
Quarter: 2024Q2

REPORT INFORMATION
  Report Type: Spontaneous
  Country: CN (occurrence: CN)
  Receive Date: 20240623
  Receipt Date: 20240623
  Transmission Date: 20240716
  Serious: Yes (Other)
  Sender: FDA-Public Use
  Company Number: CN-BAYER-2024A088843

PATIENT
  Age: 73 Year
  Sex: Female
  Weight: 52 kg

DRUGS (3)
  1. XARELTO [Suspect]
     Active Substance: RIVAROXABAN
     Indication: Atrial fibrillation
     Dosage: 10 MG, QD
     Route: 048
     Dates: start: 20240608, end: 20240612
  2. LEUCOGEN [Concomitant]
     Active Substance: LEUCOGEN
     Dosage: UNK
     Route: 048
  3. BATILOL [Concomitant]
     Active Substance: BATILOL
     Dosage: UNK
     Route: 048

REACTIONS (4)
  - Leukopenia [Unknown]
  - Thrombocytopenia [Unknown]
  - Underdose [Unknown]
  - Prescribed underdose [Unknown]

NARRATIVE: CASE EVENT DATE: 20240608
